FAERS Safety Report 21821163 (Version 1)
Quarter: 2023Q1

REPORT INFORMATION
  Report Type: Report from Study
  Country: IR (occurrence: IR)
  Receive Date: 20230105
  Receipt Date: 20230105
  Transmission Date: 20230418
  Serious: Yes (Death, Hospitalization, Other)
  Sender: FDA-Public Use
  Company Number: IR-SUN PHARMACEUTICAL INDUSTRIES LTD-2022R1-371815

PATIENT
  Age: 79 Year
  Sex: Female

DRUGS (1)
  1. DIGOXIN [Suspect]
     Active Substance: DIGOXIN
     Indication: Product used for unknown indication
     Route: 065

REACTIONS (8)
  - Gastrointestinal haemorrhage [Fatal]
  - Coagulopathy [Fatal]
  - Toxicity to various agents [Unknown]
  - Asthenia [Unknown]
  - Confusional state [Unknown]
  - Sinus bradycardia [Unknown]
  - Nausea [Unknown]
  - Vomiting [Unknown]
